FAERS Safety Report 23124827 (Version 1)
Quarter: 2023Q4

REPORT INFORMATION
  Report Type: Spontaneous
  Country: US (occurrence: US)
  Receive Date: 20231030
  Receipt Date: 20231030
  Transmission Date: 20240110
  Serious: No
  Sender: FDA-Public Use
  Company Number: US-009507513-2310USA009036

PATIENT
  Sex: Female

DRUGS (2)
  1. KEYTRUDA [Suspect]
     Active Substance: PEMBROLIZUMAB
     Dosage: UNKNOWN BY REPORTER
  2. PADCEV [Suspect]
     Active Substance: ENFORTUMAB VEDOTIN-EJFV

REACTIONS (2)
  - Nausea [Unknown]
  - Off label use [Unknown]
